FAERS Safety Report 4545921-4 (Version None)
Quarter: 2005Q1

REPORT INFORMATION
  Report Type: 
  Country: None (occurrence: None)
  Receive Date: 20050103
  Receipt Date: 20041220
  Transmission Date: 20050727
  Serious: Yes (Disabling, Other)
  Sender: FDA-Public Use
  Company Number: 2004077307

PATIENT
  Sex: Female

DRUGS (7)
  1. CADUET (ATORVASTATIN, AMLODIPINE) [Suspect]
     Indication: HYPERTENSION
     Dosage: 5/20 (1 IN 1 D), ORAL
     Route: 048
     Dates: start: 20040817, end: 20040830
  2. AMLODIPINE BESILATE (AMLODIPINE BESILATE0 [Concomitant]
  3. ATORVASTATIN (ATORVASTATIN) [Concomitant]
  4. GABAPENTIN [Concomitant]
  5. LISINOPRIL [Concomitant]
  6. METFORMIN HYDROCHLORIDE/ROSIGLITAOZNE (METFORMIN HYDROCHLORIDE, ROSIGL [Concomitant]
  7. TRAMADOL HYDROCHLORIDE (TRAMADOL HYDROCHLORIDE0 [Concomitant]

REACTIONS (7)
  - ASTHENIA [None]
  - BRADYCARDIA [None]
  - DIZZINESS [None]
  - HYPOTENSION [None]
  - IMPAIRED WORK ABILITY [None]
  - NAUSEA [None]
  - NEPHROLITHIASIS [None]
